FAERS Safety Report 24318055 (Version 1)
Quarter: 2024Q3

REPORT INFORMATION
  Report Type: Spontaneous
  Country: CN (occurrence: CN)
  Receive Date: 20240913
  Receipt Date: 20240913
  Transmission Date: 20241016
  Serious: Yes (Hospitalization)
  Sender: NOVAST
  Company Number: CN-NOVAST LABORATORIES INC.-2024NOV000295

PATIENT

DRUGS (2)
  1. METOPROLOL SUCCINATE [Suspect]
     Active Substance: METOPROLOL SUCCINATE
     Indication: Cardiac failure
     Dosage: 12.5 MILLIGRAM, PER DAY
     Route: 048
     Dates: start: 20240716, end: 20240813
  2. DIGOXIN [Suspect]
     Active Substance: DIGOXIN
     Indication: Cardiac failure
     Dosage: 0.125 MILLIGRAM, PER DAY
     Route: 048
     Dates: start: 20240716, end: 20240813

REACTIONS (2)
  - Arrhythmia [Recovering/Resolving]
  - Blood pressure decreased [Recovering/Resolving]
